FAERS Safety Report 20790148 (Version 1)
Quarter: 2022Q2

REPORT INFORMATION
  Report Type: Spontaneous
  Country: US (occurrence: None)
  Receive Date: 20220505
  Receipt Date: 20220505
  Transmission Date: 20220721
  Serious: Yes (Death)
  Sender: FDA-Public Use
  Company Number: None

PATIENT
  Age: 52 Year
  Sex: Male

DRUGS (11)
  1. VOTRIENT [Suspect]
     Active Substance: PAZOPANIB HYDROCHLORIDE
     Indication: Soft tissue sarcoma
     Dosage: TAKE 4 TABLETS BY MOUTH ONCE A DAY. TAKE ON AN EMPTY STOMACH, 1 HOUR BEFORE OR 2 HOURS AFTER A MEAL?
     Route: 048
     Dates: start: 20220317, end: 20220430
  2. GABAPENTIN [Concomitant]
     Active Substance: GABAPENTIN
  3. HYDROMORPHON TAB [Concomitant]
  4. IBUPROFEN TAB [Concomitant]
  5. KEPPRA TAB [Concomitant]
  6. LISINOPRIL [Concomitant]
     Active Substance: LISINOPRIL
  7. MECLIZINE CHW [Concomitant]
  8. PANTOPRAZOLE TAB [Concomitant]
  9. PAROXETINE TAB [Concomitant]
  10. PRAVASTATIN [Concomitant]
     Active Substance: PRAVASTATIN
  11. PROCHLORPER TAB [Concomitant]

REACTIONS (1)
  - Drug ineffective [None]

NARRATIVE: CASE EVENT DATE: 20220430
